FAERS Safety Report 25887520 (Version 1)
Quarter: 2025Q4

REPORT INFORMATION
  Report Type: Spontaneous
  Country: BR (occurrence: BR)
  Receive Date: 20251007
  Receipt Date: 20251007
  Transmission Date: 20260118
  Serious: Yes (Other)
  Sender: BAXTER
  Company Number: BR-BAXTER-2025BAX022277

PATIENT
  Sex: Male

DRUGS (2)
  1. DEXTROSE [Suspect]
     Active Substance: DEXTROSE MONOHYDRATE
     Dosage: 250 ML, 5% GLUCOSE
     Route: 065
     Dates: start: 20250911, end: 20250911
  2. NOREPINEPHRINE [Suspect]
     Active Substance: NOREPINEPHRINE
     Dosage: 16 MG (4 MG/4 ML)
     Route: 065
     Dates: start: 20250911, end: 20250911

REACTIONS (6)
  - Cardiac failure acute [Recovered/Resolved]
  - Troponin increased [Not Recovered/Not Resolved]
  - Haemodynamic instability [Recovered/Resolved]
  - Tachyarrhythmia [Recovered/Resolved]
  - Hypertension [Recovered/Resolved]
  - Device infusion issue [Unknown]

NARRATIVE: CASE EVENT DATE: 20250911
